FAERS Safety Report 16808400 (Version 2)
Quarter: 2019Q3

REPORT INFORMATION
  Report Type: Report from Study
  Country: None (occurrence: BE)
  Receive Date: 20190916
  Receipt Date: 20190922
  Transmission Date: 20191005
  Serious: Yes (Hospitalization)
  Sender: FDA-Public Use
  Company Number: BE-ABBVIE-19K-013-2922229-00

PATIENT
  Sex: Female
  Weight: 74 kg

DRUGS (3)
  1. DUODOPA [Suspect]
     Active Substance: CARBIDOPA\LEVODOPA
     Indication: PARKINSON^S DISEASE
     Dosage: MD=9ML, CD=3.5ML/HR DURING 16HRS, ED=1.5ML
     Route: 050
     Dates: start: 20161212, end: 20170622
  2. DUODOPA [Suspect]
     Active Substance: CARBIDOPA\LEVODOPA
     Dosage: MD=9ML, CD=3ML/HR DURING 16HRS, ED=2ML
     Route: 050
     Dates: start: 20190110
  3. DUODOPA [Suspect]
     Active Substance: CARBIDOPA\LEVODOPA
     Dosage: DOSES CONTINUOUSLY MONITORED AND ADAPTED
     Route: 050
     Dates: start: 20170622, end: 20190110

REACTIONS (2)
  - Unintentional medical device removal [Unknown]
  - Endocarditis [Unknown]
